FAERS Safety Report 20033792 (Version 2)
Quarter: 2021Q4

REPORT INFORMATION
  Report Type: Spontaneous
  Country: CN (occurrence: CN)
  Receive Date: 20211104
  Receipt Date: 20211108
  Transmission Date: 20220303
  Serious: Yes (Other)
  Sender: FDA-Public Use
  Company Number: ALC2021CN005923

PATIENT
  Age: 50 Year
  Sex: Female
  Weight: 80 kg

DRUGS (4)
  1. FLUORESCITE [Suspect]
     Active Substance: FLUORESCEIN SODIUM
     Indication: Fundoscopy
     Dosage: 0.5 G, QD
     Route: 042
     Dates: start: 20211021, end: 20211021
  2. SODIUM CHLORIDE [Suspect]
     Active Substance: SODIUM CHLORIDE
     Indication: Drug therapy enhancement
     Dosage: 250 ML
     Route: 042
  3. PUERARIN [Suspect]
     Active Substance: PUERARIN
     Indication: Product used for unknown indication
     Dosage: 0.4 G, QD
     Route: 042
  4. ELEUTHERO\HERBALS [Suspect]
     Active Substance: ELEUTHERO\HERBALS
     Indication: Product used for unknown indication
     Dosage: 250 ML, QD
     Route: 042

REACTIONS (3)
  - Papule [Recovered/Resolved]
  - Throat irritation [Recovered/Resolved]
  - Throat tightness [Recovered/Resolved]

NARRATIVE: CASE EVENT DATE: 20211021
